FAERS Safety Report 25040582 (Version 4)
Quarter: 2025Q4

REPORT INFORMATION
  Report Type: Spontaneous
  Country: US (occurrence: US)
  Receive Date: 20250305
  Receipt Date: 20251020
  Transmission Date: 20260118
  Serious: Yes (Hospitalization, Other)
  Sender: ROCHE
  Company Number: US-ROCHE-10000214905

PATIENT
  Age: 84 Year
  Sex: Male
  Weight: 71.67 kg

DRUGS (2)
  1. AVASTIN [Suspect]
     Active Substance: BEVACIZUMAB
     Indication: Neovascular age-related macular degeneration
     Dosage: ONCE EVERY 4 OR 5 WEEKS INJECTION INTO RIGHT EYE
     Route: 050
     Dates: start: 20170627, end: 20250115
  2. VABYSMO [Suspect]
     Active Substance: FARICIMAB-SVOA
     Indication: Neovascular age-related macular degeneration
     Route: 050
     Dates: start: 20250219, end: 20250219

REACTIONS (9)
  - Visual field defect [Unknown]
  - Off label use [Unknown]
  - Vision blurred [Recovered/Resolved]
  - Tunnel vision [Unknown]
  - Feeling abnormal [Unknown]
  - Cerebrovascular accident [Unknown]
  - Visual field defect [Not Recovered/Not Resolved]
  - Cerebrovascular accident [Recovered/Resolved with Sequelae]
  - Blindness [Unknown]

NARRATIVE: CASE EVENT DATE: 20250220
